FAERS Safety Report 11049395 (Version 2)
Quarter: 2015Q2

REPORT INFORMATION
  Report Type: Spontaneous
  Country: JP (occurrence: JP)
  Receive Date: 20150420
  Receipt Date: 20150523
  Transmission Date: 20150821
  Serious: Yes (Hospitalization)
  Sender: FDA-Public Use
  Company Number: JP-B.I. PHARMACEUTICALS,INC./RIDGEFIELD-2015-BI-14576NB

PATIENT
  Age: 58 Year
  Sex: Female
  Weight: 74 kg

DRUGS (12)
  1. PREDONINE [Suspect]
     Active Substance: PREDNISOLONE\PREDNISOLONE ACETATE\PREDNISOLONE SODIUM SUCCINATE
     Dosage: 18 MG
     Route: 048
     Dates: start: 20150120, end: 20150209
  2. ALLELOCK [Concomitant]
     Active Substance: OLOPATADINE HYDROCHLORIDE
     Indication: DERMATITIS BULLOUS
     Dosage: 10 MG
     Route: 048
     Dates: start: 20141126
  3. PREDONINE [Suspect]
     Active Substance: PREDNISOLONE\PREDNISOLONE ACETATE\PREDNISOLONE SODIUM SUCCINATE
     Indication: DERMATITIS BULLOUS
     Dosage: 50 MG
     Route: 048
     Dates: start: 20141104
  4. PREDONINE [Suspect]
     Active Substance: PREDNISOLONE\PREDNISOLONE ACETATE\PREDNISOLONE SODIUM SUCCINATE
     Dosage: 30 MG
     Route: 048
     Dates: end: 20150119
  5. VALTREX [Concomitant]
     Active Substance: VALACYCLOVIR HYDROCHLORIDE
     Indication: DERMATITIS BULLOUS
     Dosage: 1000 MG
     Route: 048
     Dates: start: 20141126, end: 20141130
  6. LIDOMEX [Concomitant]
     Active Substance: PREDNISOLONE VALERATE ACETATE
     Indication: DERMATITIS BULLOUS
     Route: 062
     Dates: start: 20141205
  7. MICARDIS [Suspect]
     Active Substance: TELMISARTAN
     Indication: HYPERTENSION
     Dosage: 20 MG
     Route: 048
     Dates: start: 20141128, end: 20150209
  8. GASTER [Suspect]
     Active Substance: FAMOTIDINE
     Indication: PROPHYLAXIS AGAINST GASTROINTESTINAL ULCER
     Dosage: 40 MG
     Route: 048
     Dates: start: 20141203, end: 20150126
  9. HIRUDOID [Concomitant]
     Active Substance: GLYCOSAMINOGLYCANS
     Indication: DERMATITIS BULLOUS
     Route: 062
     Dates: start: 20141205
  10. TAKEPRON [Suspect]
     Active Substance: LANSOPRAZOLE
     Indication: PROPHYLAXIS AGAINST GASTROINTESTINAL ULCER
     Dosage: 15 MG
     Route: 048
     Dates: start: 20141104, end: 20141203
  11. ONEALFA [Suspect]
     Active Substance: ALFACALCIDOL
     Indication: OSTEOPOROSIS
     Dosage: 1 MCG
     Route: 048
     Dates: start: 20141111, end: 20150126
  12. RINDERON VG [Concomitant]
     Active Substance: BETAMETHASONE VALERATE\GENTAMICIN SULFATE
     Indication: DERMATITIS BULLOUS
     Route: 062
     Dates: start: 20141101

REACTIONS (2)
  - Dermatitis bullous [Not Recovered/Not Resolved]
  - Drug eruption [Not Recovered/Not Resolved]

NARRATIVE: CASE EVENT DATE: 20150121
